FAERS Safety Report 6574247-2 (Version None)
Quarter: 2010Q1

REPORT INFORMATION
  Report Type: 
  Country: None (occurrence: None)
  Receive Date: 20100201
  Receipt Date: 20100120
  Transmission Date: 20100710
  Serious: Yes (Death, Hospitalization, Other)
  Sender: FDA-Public Use
  Company Number: 2009-03830

PATIENT
  Age: 54 Year
  Sex: Female
  Weight: 55.8 kg

DRUGS (10)
  1. VELCADE [Suspect]
     Indication: MULTIPLE MYELOMA
     Dosage: 1.3 MG/M2
     Dates: start: 20090706, end: 20090916
  2. CCI-779 (TEMSIROLIMUS) INJECTION [Suspect]
     Indication: MULTIPLE MYELOMA
     Dosage: 15 MG
     Dates: start: 20090706, end: 20090916
  3. AMBIEN [Concomitant]
  4. FILGRASTIM (FILGRASTIM) [Concomitant]
  5. LEVOFLOXACIN [Concomitant]
  6. OXYCODONE HCL [Concomitant]
  7. VALACYCLOVIR [Concomitant]
  8. LIPITOR [Concomitant]
  9. VALTREX [Concomitant]
  10. TYLENOL [Concomitant]

REACTIONS (12)
  - BACTERIAL TEST POSITIVE [None]
  - BLOOD URINE [None]
  - DIARRHOEA [None]
  - FEBRILE NEUTROPENIA [None]
  - HEART RATE INCREASED [None]
  - LEUKOPENIA [None]
  - MALIGNANT NEOPLASM PROGRESSION [None]
  - MULTIPLE MYELOMA [None]
  - PLEURAL EFFUSION [None]
  - PNEUMONIA [None]
  - PROTEIN URINE PRESENT [None]
  - SEPSIS [None]
